FAERS Safety Report 21233623 (Version 1)
Quarter: 2022Q3

REPORT INFORMATION
  Report Type: Spontaneous
  Country: US (occurrence: None)
  Receive Date: 20220819
  Receipt Date: 20220819
  Transmission Date: 20221026
  Serious: Yes (Disabling, Other)
  Sender: FDA-Public Use
  Company Number: None

PATIENT
  Age: 52 Year
  Sex: Female
  Weight: 87.3 kg

DRUGS (9)
  1. PAXLOVID [Suspect]
     Active Substance: NIRMATRELVIR\RITONAVIR
     Indication: COVID-19
     Dosage: OTHER QUANTITY : 3 TABLET(S);?FREQUENCY : TWICE A DAY;?
     Route: 048
     Dates: start: 20220809, end: 20220813
  2. Pantroprazole [Concomitant]
  3. METOPROLOL [Concomitant]
     Active Substance: METOPROLOL
  4. HYDROCHLOROTHIAZIDE [Concomitant]
     Active Substance: HYDROCHLOROTHIAZIDE
  5. VENTOLIN [Concomitant]
     Active Substance: ALBUTEROL SULFATE
  6. SINGULAIR [Concomitant]
     Active Substance: MONTELUKAST SODIUM
  7. ONDANSETRON [Concomitant]
     Active Substance: ONDANSETRON
  8. TUSSIN [Concomitant]
     Active Substance: GUAIFENESIN
  9. ADVIL [Concomitant]
     Active Substance: IBUPROFEN

REACTIONS (7)
  - Dysgeusia [None]
  - Diarrhoea [None]
  - Abdominal pain upper [None]
  - Arthralgia [None]
  - Arthralgia [None]
  - Muscle strain [None]
  - Pain in extremity [None]

NARRATIVE: CASE EVENT DATE: 20220809
